FAERS Safety Report 7991872-2 (Version None)
Quarter: 2011Q4

REPORT INFORMATION
  Report Type: 
  Country: None (occurrence: None)
  Receive Date: 20111219
  Receipt Date: 20111215
  Transmission Date: 20120403
  Serious: Yes (Death, Hospitalization)
  Sender: FDA-Public Use
  Company Number: JP-ABBOTT-11P-087-0715310-00

PATIENT
  Sex: Male
  Weight: 57 kg

DRUGS (4)
  1. HUMIRA [Suspect]
     Dates: start: 20100707, end: 20110119
  2. BEPOTASTINE BESILATE [Concomitant]
     Indication: RHINITIS ALLERGIC
     Dosage: 20MG DAILY
     Route: 048
     Dates: start: 20100321, end: 20100421
  3. HUMIRA [Suspect]
     Indication: PSORIASIS
     Route: 058
     Dates: start: 20100217, end: 20100310
  4. HUMIRA [Suspect]
     Dates: start: 20100311, end: 20100706

REACTIONS (8)
  - METASTATIC GASTRIC CANCER [None]
  - LUNG ADENOCARCINOMA [None]
  - PULMONARY TUBERCULOSIS [None]
  - EMPHYSEMA [None]
  - METASTASES TO PERITONEUM [None]
  - LUNG NEOPLASM [None]
  - BACTERIAL TEST POSITIVE [None]
  - DIVERTICULUM INTESTINAL [None]
